FAERS Safety Report 8184280-5 (Version None)
Quarter: 2012Q1

REPORT INFORMATION
  Report Type: 
  Country: None (occurrence: None)
  Receive Date: 20120305
  Receipt Date: 20120302
  Transmission Date: 20120608
  Serious: Yes (Hospitalization)
  Sender: FDA-Public Use
  Company Number: IT-BAYER-2012-021210

PATIENT
  Age: 73 Year
  Sex: Female

DRUGS (4)
  1. CARVEDILOL [Concomitant]
     Dosage: DAILY DOSE 6.25 MG
     Route: 048
  2. ASPIRIN [Suspect]
     Indication: PROPHYLAXIS
     Dosage: 100 MG, QD
     Route: 048
     Dates: start: 20090101, end: 20120206
  3. MINITRAN [Concomitant]
     Dosage: DAILY DOSE 10 MG/24HR
     Route: 062
  4. OMEPRAZOLE [Concomitant]
     Dosage: DAILY DOSE 1 DF

REACTIONS (2)
  - ANAEMIA [None]
  - DUODENAL ULCER [None]
